FAERS Safety Report 6074165-2 (Version None)
Quarter: 2009Q1

REPORT INFORMATION
  Report Type: 
  Country: None (occurrence: None)
  Receive Date: 20090211
  Receipt Date: 20090203
  Transmission Date: 20090719
  Serious: Yes (Hospitalization)
  Sender: FDA-Public Use
  Company Number: US-PURDUE-USA_2009_0036734

PATIENT
  Age: 84 Year
  Sex: Female

DRUGS (7)
  1. SENOKOT [Suspect]
     Indication: CONSTIPATION
     Dosage: 1 TABLET, NOCTE PRN
  2. ATENOLOL [Concomitant]
     Indication: BLOOD PRESSURE
     Dosage: 100 MG, DAILY
     Dates: start: 20090101
  3. TRAMADOL HCL [Concomitant]
     Indication: PAIN
     Dosage: 50 MG, DAILY
  4. LISINOPRIL [Concomitant]
     Indication: BLOOD PRESSURE
     Dosage: 10 MG, DAILY
     Dates: start: 20090101
  5. NORVASC [Concomitant]
     Indication: BLOOD PRESSURE
     Dosage: 1 TABLET, DAILY
     Dates: start: 20090101
  6. LASIX [Concomitant]
     Indication: OEDEMA PERIPHERAL
     Dosage: 40 MG, DAILY
  7. LOVASTATIN [Concomitant]
     Indication: BLOOD CHOLESTEROL
     Dosage: 20 MG, DAILY

REACTIONS (1)
  - CYSTITIS [None]
